FAERS Safety Report 8262797 (Version 3)
Quarter: 2013Q1

REPORT INFORMATION
  Report Type: Spontaneous
  Country: US (occurrence: US)
  Receive Date: 20111124
  Receipt Date: 20130326
  Transmission Date: 20140127
  Serious: Yes (Other)
  Sender: FDA-Public Use
  Company Number: US-ROCHE-1015971

PATIENT
  Age: 32 None
  Sex: Female
  Weight: 56.75 kg

DRUGS (2)
  1. ACCUTANE [Suspect]
     Indication: ACNE
     Dosage: DOSE: 40MG, 20MG
     Route: 065
     Dates: start: 19871104, end: 19880330
  2. FELDENE [Concomitant]

REACTIONS (9)
  - Colitis ulcerative [Unknown]
  - Crohn^s disease [Unknown]
  - Inflammatory bowel disease [Unknown]
  - Depression [Unknown]
  - Injury [Unknown]
  - Mental disorder [Unknown]
  - Suicidal ideation [Unknown]
  - Urticaria [Unknown]
  - Headache [Unknown]
